FAERS Safety Report 4357084-9 (Version None)
Quarter: 2004Q2

REPORT INFORMATION
  Report Type: 
  Country: None (occurrence: None)
  Receive Date: 20040507
  Receipt Date: 20040427
  Transmission Date: 20050107
  Serious: Yes (Other)
  Sender: FDA-Public Use
  Company Number: 2004028454

PATIENT
  Age: 62 Year
  Sex: Male

DRUGS (1)
  1. LIPITOR [Suspect]
     Indication: HYPERCHOLESTEROLAEMIA
     Dosage: 10 MG (DAILY), ORAL
     Route: 048
     Dates: start: 20000101

REACTIONS (5)
  - ARTHRALGIA [None]
  - CORONARY ARTERY SURGERY [None]
  - INCISION SITE COMPLICATION [None]
  - MUSCLE ATROPHY [None]
  - PAIN [None]
